FAERS Safety Report 5376115-0 (Version None)
Quarter: 2007Q3

REPORT INFORMATION
  Report Type: 
  Country: None (occurrence: None)
  Receive Date: 20070702
  Receipt Date: 20070621
  Transmission Date: 20080115
  Serious: Yes (Life-Threatening)
  Sender: FDA-Public Use
  Company Number: B0472500A

PATIENT
  Age: 84 Year
  Sex: Female
  Weight: 52 kg

DRUGS (8)
  1. PAROXETINE HCL [Suspect]
     Route: 048
     Dates: end: 20070401
  2. ACTRAPID [Concomitant]
  3. GUTRON [Concomitant]
  4. LANTUS [Concomitant]
  5. LASIX [Concomitant]
  6. ASPIRIN [Concomitant]
  7. INIPOMP [Concomitant]
  8. FLUDROCORTISONE ACETATE [Concomitant]

REACTIONS (1)
  - PULMONARY FIBROSIS [None]
